FAERS Safety Report 8403484-7 (Version None)
Quarter: 2012Q2

REPORT INFORMATION
  Report Type: 
  Country: None (occurrence: None)
  Receive Date: 20120601
  Receipt Date: 20120522
  Transmission Date: 20120825
  Serious: Yes (Other)
  Sender: FDA-Public Use
  Company Number: US-FRI-1000030708

PATIENT
  Age: 49 Year
  Sex: Female

DRUGS (5)
  1. LAMOTRIGINE [Concomitant]
  2. VIIBRYD [Suspect]
     Indication: DEPRESSION
     Dosage: 5 MG
     Dates: start: 20120401, end: 20120101
  3. VIIBRYD [Suspect]
     Indication: POST-TRAUMATIC STRESS DISORDER
  4. VIIBRYD [Suspect]
  5. VIIBRYD [Suspect]
     Dosage: 10 MG
     Dates: start: 20120101, end: 20120501

REACTIONS (1)
  - SUICIDAL IDEATION [None]
